FAERS Safety Report 9502316 (Version 1)
Quarter: 2013Q3

REPORT INFORMATION
  Report Type: Spontaneous
  Country: US (occurrence: US)
  Receive Date: 20130906
  Receipt Date: 20130906
  Transmission Date: 20140515
  Serious: No
  Sender: FDA-Public Use
  Company Number: US-BIOGENIDEC-2013BI083679

PATIENT
  Age: 71 Year
  Sex: Female

DRUGS (5)
  1. AVONEX [Suspect]
     Indication: MULTIPLE SCLEROSIS
     Route: 030
     Dates: start: 20110314
  2. AZILECT [Concomitant]
  3. CALCIUM [Concomitant]
  4. ETODOLAC CR [Concomitant]
  5. NORTRIPTYLINE HCL [Concomitant]

REACTIONS (1)
  - Disease progression [Unknown]
